FAERS Safety Report 19202259 (Version 1)
Quarter: 2021Q2

REPORT INFORMATION
  Report Type: Spontaneous
  Country: US (occurrence: US)
  Receive Date: 20210502
  Receipt Date: 20210502
  Transmission Date: 20210717
  Serious: No
  Sender: FDA-Public Use
  Company Number: NVSC2021US098532

PATIENT
  Age: 35 Year
  Sex: Female

DRUGS (1)
  1. TASIGNA [Suspect]
     Active Substance: NILOTINIB
     Indication: CHRONIC MYELOID LEUKAEMIA
     Dosage: UNK (BID)
     Route: 065
     Dates: start: 201607, end: 201609

REACTIONS (3)
  - Chest pain [Unknown]
  - Rash [Unknown]
  - Scar [Unknown]

NARRATIVE: CASE EVENT DATE: 201607
